FAERS Safety Report 9848748 (Version 1)
Quarter: 2014Q1

REPORT INFORMATION
  Report Type: Spontaneous
  Country: US (occurrence: US)
  Receive Date: 20140128
  Receipt Date: 20140128
  Transmission Date: 20141002
  Serious: No
  Sender: FDA-Public Use
  Company Number: US-009507513-1401USA008358

PATIENT
  Age: 32 Year
  Sex: 0

DRUGS (1)
  1. NUVARING [Suspect]
     Indication: CONTRACEPTION
     Dosage: 015/.12

REACTIONS (3)
  - Amenorrhoea [Unknown]
  - Incorrect drug administration duration [Unknown]
  - Drug prescribing error [Unknown]
